FAERS Safety Report 8624173-X (Version None)
Quarter: 2012Q3

REPORT INFORMATION
  Report Type: 
  Country: None (occurrence: None)
  Receive Date: 20120827
  Receipt Date: 20120820
  Transmission Date: 20120928
  Serious: Yes (Hospitalization)
  Sender: FDA-Public Use
  Company Number: US-JNJFOC-20120806566

PATIENT
  Sex: Female
  Weight: 26.6 kg

DRUGS (3)
  1. PREDNISONE TAB [Concomitant]
  2. METHOTREXATE [Concomitant]
  3. REMICADE [Suspect]
     Indication: INFLAMMATORY BOWEL DISEASE
     Route: 042
     Dates: start: 20110407, end: 20120310

REACTIONS (1)
  - INTESTINAL OBSTRUCTION [None]
